FAERS Safety Report 10960567 (Version 2)
Quarter: 2015Q2

REPORT INFORMATION
  Report Type: Spontaneous
  Country: US (occurrence: US)
  Receive Date: 20150327
  Receipt Date: 20150430
  Transmission Date: 20150821
  Serious: No
  Sender: FDA-Public Use
  Company Number: US-TEVA-548668USA

PATIENT
  Sex: Female

DRUGS (1)
  1. QVAR [Suspect]
     Active Substance: BECLOMETHASONE DIPROPIONATE
     Indication: PRODUCT USED FOR UNKNOWN INDICATION
     Dosage: 160 MICROGRAM DAILY; ONE PUFF IN THE MORNING AND ONE PUFF AT NIGHT
     Route: 055

REACTIONS (5)
  - Wrong technique in drug usage process [Unknown]
  - Drug ineffective [Unknown]
  - Therapeutic response changed [Unknown]
  - Device malfunction [Unknown]
  - Underdose [Unknown]
